FAERS Safety Report 15058823 (Version 1)
Quarter: 2018Q2

REPORT INFORMATION
  Report Type: Spontaneous
  Country: US (occurrence: US)
  Receive Date: 20180604
  Receipt Date: 20180604
  Transmission Date: 20180711
  Serious: No
  Sender: FDA-Public Use
  Company Number: None

PATIENT
  Age: 54 Year
  Sex: Female

DRUGS (1)
  1. LETAIRIS [Suspect]
     Active Substance: AMBRISENTAN
     Indication: PULMONARY ARTERIAL HYPERTENSION
     Route: 048
     Dates: start: 20180504

REACTIONS (7)
  - Swelling face [None]
  - Diarrhoea [None]
  - Abdominal distension [None]
  - Cough [None]
  - Pyrexia [None]
  - Dyspnoea exertional [None]
  - Sinusitis [None]

NARRATIVE: CASE EVENT DATE: 20180603
